FAERS Safety Report 12697357 (Version 1)
Quarter: 2016Q3

REPORT INFORMATION
  Report Type: Spontaneous
  Country: US (occurrence: None)
  Receive Date: 20160829
  Receipt Date: 20160829
  Transmission Date: 20161109
  Serious: Yes (Life-Threatening, Hospitalization)
  Sender: FDA-Public Use
  Company Number: None

PATIENT
  Age: 75 Year
  Sex: Male
  Weight: 81.5 kg

DRUGS (13)
  1. CHOLECALCIFEROL (VITAMIN D) [Concomitant]
  2. LANOXIN [Concomitant]
     Active Substance: DIGOXIN
  3. INSULIN LISPRO (HUMALOG) [Concomitant]
  4. MAGNESIUM OXIDE (MAG-OX) [Concomitant]
  5. SPIRONOLACTONE (ALDACTONE) [Concomitant]
  6. LANTUS [Concomitant]
     Active Substance: INSULIN GLARGINE
  7. ALTACE [Concomitant]
     Active Substance: RAMIPRIL
  8. TORSEMIDE (DEMADEX) [Concomitant]
  9. WARFARIN, 5MG TEVA [Suspect]
     Active Substance: WARFARIN SODIUM
     Indication: ATRIAL FIBRILLATION
     Route: 048
  10. LIPITOR [Concomitant]
     Active Substance: ATORVASTATIN CALCIUM
  11. PRILOSEC [Concomitant]
     Active Substance: OMEPRAZOLE MAGNESIUM
  12. METOPROLOL (LOPRESSOR) [Concomitant]
  13. ASPIRIN EC [Concomitant]
     Active Substance: ASPIRIN

REACTIONS (4)
  - Unresponsive to stimuli [None]
  - Fall [None]
  - Cerebral haematoma [None]
  - Bacteraemia [None]

NARRATIVE: CASE EVENT DATE: 20160714
